FAERS Safety Report 10846578 (Version 2)
Quarter: 2015Q1

REPORT INFORMATION
  Report Type: Report from Study
  Country: US (occurrence: US)
  Receive Date: 20150220
  Receipt Date: 20150224
  Transmission Date: 20150721
  Serious: Yes (Death, Hospitalization)
  Sender: FDA-Public Use
  Company Number: US-CELGENE-163-20785-10082543

PATIENT
  Age: 83 Year
  Sex: Female
  Weight: 59 kg

DRUGS (7)
  1. THALOMID [Suspect]
     Active Substance: THALIDOMIDE
     Route: 048
     Dates: start: 20100819, end: 20100823
  2. REVLIMID [Suspect]
     Active Substance: LENALIDOMIDE
  3. THALOMID [Suspect]
     Active Substance: THALIDOMIDE
     Indication: PLASMA CELL MYELOMA
     Route: 048
     Dates: start: 20090326
  4. PREDNISONE. [Suspect]
     Active Substance: PREDNISONE
     Indication: PLASMA CELL MYELOMA
     Route: 048
     Dates: start: 20090326, end: 20100207
  5. THALIDOMIDE [Suspect]
     Active Substance: THALIDOMIDE
  6. MELPHALAN [Suspect]
     Active Substance: MELPHALAN
     Indication: PLASMA CELL MYELOMA
     Route: 048
     Dates: start: 20090326, end: 20100207
  7. ENTERIC COATED ASPIRIN [Concomitant]
     Active Substance: ASPIRIN
     Indication: PRODUCT USED FOR UNKNOWN INDICATION
     Route: 048
     Dates: start: 20090326

REACTIONS (2)
  - Myocardial infarction [Unknown]
  - Left ventricular dysfunction [Fatal]

NARRATIVE: CASE EVENT DATE: 20100824
